FAERS Safety Report 7300539-5 (Version None)
Quarter: 2011Q1

REPORT INFORMATION
  Report Type: 
  Country: None (occurrence: None)
  Receive Date: 20110218
  Receipt Date: 20110208
  Transmission Date: 20110831
  Serious: Yes (Hospitalization)
  Sender: FDA-Public Use
  Company Number: FR-AMGEN-FRASP2011008494

PATIENT
  Age: 30 Year
  Sex: Male

DRUGS (6)
  1. ACETAMINOPHEN [Concomitant]
     Dosage: 1000 MG
     Route: 048
  2. ENBREL [Suspect]
     Indication: ANKYLOSING SPONDYLITIS
     Dosage: 50 MG, WEEKLY
     Route: 058
     Dates: start: 20090420, end: 20100923
  3. IBUPROFEN [Suspect]
     Dosage: 400 MG, 2X/DAY
     Route: 048
     Dates: start: 20080101, end: 20100923
  4. PARIET [Concomitant]
     Dosage: 20 MG, 1X/DAY
     Route: 048
     Dates: start: 20060101
  5. TEMAZEPAM [Concomitant]
     Dosage: 1 DF, 1X/DAY
     Route: 048
     Dates: start: 20080101
  6. NUCTALON [Concomitant]
     Dosage: 1 DF, 1X/DAY
     Dates: start: 20100101

REACTIONS (2)
  - PULMONARY EMBOLISM [None]
  - VENOUS THROMBOSIS [None]
